FAERS Safety Report 4599739-7 (Version None)
Quarter: 2005Q1

REPORT INFORMATION
  Report Type: 
  Country: None (occurrence: None)
  Receive Date: 20050304
  Receipt Date: 20050304
  Transmission Date: 20050727
  Serious: Yes (Hospitalization)
  Sender: FDA-Public Use
  Company Number: None

PATIENT
  Age: 63 Year
  Sex: Male
  Weight: 81.6 kg

DRUGS (5)
  1. CYCLOPHOSPHAMIDE [Suspect]
     Indication: NON-HODGKIN'S LYMPHOMA
     Dosage: 3492    X 2 DAYS   INTRAVENOU
     Route: 042
     Dates: start: 20040131, end: 20040201
  2. TOTAL BODY IRRADIATION [Suspect]
     Indication: STEM CELL TRANSPLANT
     Dosage: 150CGY   BID
     Dates: start: 20040203, end: 20040205
  3. ACYCLOVIR [Concomitant]
  4. VASOTEC [Concomitant]
  5. PROTONIX [Concomitant]

REACTIONS (3)
  - MYOCARDIAL INFARCTION [None]
  - OEDEMA PERIPHERAL [None]
  - PNEUMOCYSTIS JIROVECI PNEUMONIA [None]
